FAERS Safety Report 25817266 (Version 1)
Quarter: 2025Q3

REPORT INFORMATION
  Report Type: Spontaneous
  Country: CN (occurrence: None)
  Receive Date: 20250918
  Receipt Date: 20250918
  Transmission Date: 20251021
  Serious: Yes (Hospitalization)
  Sender: INFORLIFE
  Company Number: CN-INFO-20250235

PATIENT
  Age: 50 Year
  Sex: Male

DRUGS (1)
  1. ROPIVACAINE [Suspect]
     Active Substance: ROPIVACAINE
     Indication: Perioperative analgesia
     Route: 014

REACTIONS (2)
  - Local anaesthetic systemic toxicity [Recovered/Resolved]
  - Locked-in syndrome [Recovered/Resolved]
